FAERS Safety Report 6683926-8 (Version None)
Quarter: 2010Q2

REPORT INFORMATION
  Report Type: 
  Country: None (occurrence: None)
  Receive Date: 20100416
  Receipt Date: 20100408
  Transmission Date: 20101027
  Serious: Yes (Other)
  Sender: FDA-Public Use
  Company Number: US-PFIZER INC-2010045381

PATIENT
  Sex: Male
  Weight: 77.098 kg

DRUGS (2)
  1. CELEBREX [Suspect]
     Indication: ARTHRITIS
     Dosage: 200 MG, 3X/DAY
     Route: 048
     Dates: start: 19940101
  2. CIALIS [Concomitant]
     Dosage: UNK

REACTIONS (3)
  - GASTRIC ULCER [None]
  - HEART INJURY [None]
  - MYOCARDIAL INFARCTION [None]
